FAERS Safety Report 11067353 (Version 1)
Quarter: 2015Q2

REPORT INFORMATION
  Report Type: Spontaneous
  Country: FR (occurrence: FR)
  Receive Date: 20150426
  Receipt Date: 20150426
  Transmission Date: 20150821
  Serious: Yes (Life-Threatening)
  Sender: FDA-Public Use
  Company Number: FR-PFIZER INC-2015138507

PATIENT
  Age: 56 Year
  Sex: Male

DRUGS (10)
  1. ZEFFIX [Concomitant]
     Active Substance: LAMIVUDINE
     Indication: HEPATITIS B
  2. ZELITREX [Suspect]
     Active Substance: VALACYCLOVIR HYDROCHLORIDE
     Dosage: UNK
  3. ALLOPURINOL. [Concomitant]
     Active Substance: ALLOPURINOL
  4. TAREG [Concomitant]
     Active Substance: VALSARTAN
  5. NEURONTIN [Suspect]
     Active Substance: GABAPENTIN
     Dosage: UNK
  6. CORTANCYL [Concomitant]
     Active Substance: PREDNISONE
  7. BACTRIM [Suspect]
     Active Substance: SULFAMETHOXAZOLE\TRIMETHOPRIM
     Dosage: UNK
  8. AMLOR [Concomitant]
     Active Substance: AMLODIPINE BESYLATE
  9. LASILIX [Concomitant]
     Active Substance: FUROSEMIDE
  10. SEROPLEX [Concomitant]
     Active Substance: ESCITALOPRAM OXALATE

REACTIONS (1)
  - Agranulocytosis [Recovered/Resolved]

NARRATIVE: CASE EVENT DATE: 20150406
